FAERS Safety Report 9245899 (Version 1)
Quarter: 2013Q2

REPORT INFORMATION
  Report Type: Spontaneous
  Country: ES (occurrence: ES)
  Receive Date: 20130422
  Receipt Date: 20130422
  Transmission Date: 20140414
  Serious: Yes (Life-Threatening, Hospitalization)
  Sender: FDA-Public Use
  Company Number: ES-ROCHE-1214482

PATIENT
  Age: 46 Year
  Sex: Male

DRUGS (8)
  1. ATAZANAVIR [Suspect]
     Indication: HIV INFECTION
     Route: 048
     Dates: end: 20130213
  2. COPEGUS [Suspect]
     Indication: HEPATITIS C
     Route: 048
     Dates: end: 20130213
  3. INCIVO [Suspect]
     Indication: HEPATITIS C
     Route: 048
     Dates: end: 20130213
  4. PEGASYS [Suspect]
     Indication: HEPATITIS C
     Route: 058
     Dates: end: 20130213
  5. TRUVADA [Suspect]
     Indication: HIV INFECTION
     Route: 048
     Dates: end: 20130213
  6. METHADONE [Concomitant]
     Route: 048
  7. RITONAVIR [Concomitant]
     Indication: HIV INFECTION
     Route: 048
  8. RETACRIT [Concomitant]
     Route: 058

REACTIONS (4)
  - Staphylococcal infection [Recovering/Resolving]
  - Pancytopenia [Recovering/Resolving]
  - Ecthyma [Recovering/Resolving]
  - Pyrexia [Recovered/Resolved]
